FAERS Safety Report 16588337 (Version 1)
Quarter: 2019Q3

REPORT INFORMATION
  Report Type: Report from Study
  Country: None (occurrence: RO)
  Receive Date: 20190717
  Receipt Date: 20190717
  Transmission Date: 20191004
  Serious: Yes (Other)
  Sender: FDA-Public Use
  Company Number: RO-ABBVIE-19K-135-2855789-00

PATIENT
  Age: 64 Year
  Sex: Female

DRUGS (1)
  1. HUMIRA [Suspect]
     Active Substance: ADALIMUMAB
     Indication: PSORIASIS
     Route: 058
     Dates: start: 20140515

REACTIONS (2)
  - Hepatitis C antibody positive [Not Recovered/Not Resolved]
  - Hepatitis C virus test [Not Recovered/Not Resolved]

NARRATIVE: CASE EVENT DATE: 201906
